FAERS Safety Report 4732395-3 (Version None)
Quarter: 2005Q3

REPORT INFORMATION
  Report Type: 
  Country: None (occurrence: None)
  Receive Date: 20050803
  Receipt Date: 20050720
  Transmission Date: 20060218
  Serious: Yes (Death, Other)
  Sender: FDA-Public Use
  Company Number: PHBS2005JP10447

PATIENT
  Age: 61 Year
  Sex: Female

DRUGS (9)
  1. PUVA [Concomitant]
  2. RADIOTHERAPY [Suspect]
  3. CYCLOSPORINE [Suspect]
     Indication: PARANEOPLASTIC SYNDROME
     Dosage: 4 MG/KG/D
     Route: 048
  4. METHYLPREDNISOLONE SODIUM SUCCINATE [Suspect]
     Indication: PARANEOPLASTIC SYNDROME
     Dosage: 1000 MG/D
  5. PREDNISOLONE [Suspect]
     Indication: PARANEOPLASTIC SYNDROME
     Dosage: 60 MG/D
     Route: 048
  6. CYCLOPHOSPHAMIDE [Suspect]
     Indication: DIFFUSE LARGE B-CELL LYMPHOMA
  7. DOXORUBICIN HYDROCHLORIDE [Suspect]
     Indication: DIFFUSE LARGE B-CELL LYMPHOMA
  8. VINCRISTINE SULFATE [Suspect]
     Indication: DIFFUSE LARGE B-CELL LYMPHOMA
  9. PLASMAPHERESIS [Concomitant]

REACTIONS (8)
  - BONE MARROW DEPRESSION [None]
  - C-REACTIVE PROTEIN INCREASED [None]
  - HYPOVENTILATION [None]
  - PNEUMONIA STAPHYLOCOCCAL [None]
  - PYREXIA [None]
  - RENAL IMPAIRMENT [None]
  - RESPIRATORY FAILURE [None]
  - SEPSIS [None]
